FAERS Safety Report 5886194-X (Version None)
Quarter: 2008Q3

REPORT INFORMATION
  Report Type: 
  Country: None (occurrence: None)
  Receive Date: 20080917
  Receipt Date: 20080908
  Transmission Date: 20090109
  Serious: Yes (Other)
  Sender: FDA-Public Use
  Company Number: FR-ROCHE-578886

PATIENT
  Age: 52 Year
  Sex: Female
  Weight: 73 kg

DRUGS (5)
  1. RIVOTRIL [Suspect]
     Indication: CANCER PAIN
     Dosage: 10 DROPS IN THE EVENING
     Route: 048
     Dates: start: 19990101
  2. RIVOTRIL [Suspect]
     Dosage: DOSAGE REDUCED.
     Route: 048
  3. XELODA [Concomitant]
     Indication: BREAST NEOPLASM
     Route: 065
  4. NEXIUM [Concomitant]
     Route: 065
  5. TYVERB [Concomitant]
     Route: 065

REACTIONS (2)
  - EYELID PTOSIS [None]
  - METASTASES TO CENTRAL NERVOUS SYSTEM [None]
